FAERS Safety Report 8978521 (Version 4)
Quarter: 2013Q1

REPORT INFORMATION
  Report Type: Report from Study
  Country: US (occurrence: US)
  Receive Date: 20121220
  Receipt Date: 20130327
  Transmission Date: 20140127
  Serious: Yes (Life-Threatening, Hospitalization)
  Sender: FDA-Public Use
  Company Number: US-JNJFOC-20121205535

PATIENT
  Age: 57 Year
  Sex: Female
  Weight: 49.9 kg

DRUGS (16)
  1. SIMPONI [Suspect]
     Indication: RHEUMATOID ARTHRITIS
     Route: 058
     Dates: start: 2010, end: 20120929
  2. ALL OTHER THERAPEUTIC DRUGS [Concomitant]
  3. HYDROXYQUINOLINE [Concomitant]
     Indication: ARTHRITIS
     Dates: start: 20121002
  4. HYDROXYQUINOLINE [Concomitant]
     Indication: ARTHRITIS
     Dates: start: 20121012
  5. FOLIC ACID [Concomitant]
     Indication: ARTHRITIS
     Dates: start: 20121002
  6. FOLIC ACID [Concomitant]
     Indication: ARTHRITIS
     Dates: start: 20121012
  7. METHOTREXATE [Concomitant]
     Indication: ARTHRITIS
     Dates: start: 20121002
  8. METHOTREXATE [Concomitant]
     Indication: ARTHRITIS
     Dates: start: 20121012
  9. ZETIA [Concomitant]
     Indication: ARTHRITIS
     Dates: start: 20121002
  10. ZETIA [Concomitant]
     Indication: ARTHRITIS
     Dates: start: 20121012
  11. MULTIPLE VITAMINS [Concomitant]
     Indication: ARTHRITIS
     Dates: start: 20121002
  12. MULTIPLE VITAMINS [Concomitant]
     Indication: ARTHRITIS
     Dates: start: 20121012
  13. IBUPROFEN [Concomitant]
     Indication: PAIN
     Dates: start: 20121012
  14. IBUPROFEN [Concomitant]
     Indication: PAIN
     Dates: start: 20121002
  15. TUMS [Concomitant]
     Dates: start: 20121002
  16. TUMS [Concomitant]
     Dates: start: 20121012

REACTIONS (6)
  - Septic shock [Recovered/Resolved]
  - Urinary tract infection [Recovered/Resolved]
  - Sepsis [Recovered/Resolved]
  - Nephrolithiasis [Recovering/Resolving]
  - Pneumonia [Recovered/Resolved]
  - Decreased immune responsiveness [Not Recovered/Not Resolved]
